FAERS Safety Report 6789230-1 (Version None)
Quarter: 2010Q2

REPORT INFORMATION
  Report Type: 
  Country: None (occurrence: None)
  Receive Date: 20100623
  Receipt Date: 20090124
  Transmission Date: 20101027
  Serious: No
  Sender: FDA-Public Use
  Company Number: US-PFIZER INC-2008035416

PATIENT
  Sex: Female
  Weight: 72.727 kg

DRUGS (6)
  1. CADUET [Suspect]
     Indication: HYPERTENSION
     Dosage: 5/20MG TDD:5/20MG
     Route: 048
     Dates: start: 20060109
  2. CADUET [Suspect]
     Indication: BLOOD CHOLESTEROL INCREASED
  3. ACCUPRIL [Concomitant]
  4. DETROL LA [Concomitant]
     Indication: HYPERTONIC BLADDER
  5. EVISTA [Concomitant]
  6. ASPIRIN [Concomitant]

REACTIONS (2)
  - EXPIRED DRUG ADMINISTERED [None]
  - HYPERTONIC BLADDER [None]
